FAERS Safety Report 7788950-X (Version None)
Quarter: 2011Q3

REPORT INFORMATION
  Report Type: 
  Country: None (occurrence: None)
  Receive Date: 20110930
  Receipt Date: 20110921
  Transmission Date: 20111222
  Serious: Yes (Other)
  Sender: FDA-Public Use
  Company Number: US-JNJFOC-20110813266

PATIENT
  Sex: Male
  Weight: 67.13 kg

DRUGS (5)
  1. LOPRESSOR [Concomitant]
     Indication: HEART RATE INCREASED
     Route: 065
     Dates: start: 20091201
  2. POTASSIUM [Concomitant]
     Indication: PROPHYLAXIS
     Route: 048
     Dates: start: 20100101
  3. ZYTIGA [Suspect]
     Indication: PROSTATE CANCER
     Dosage: STRENGTH: 250 MG
     Route: 048
     Dates: start: 20110824
  4. PREDNISONE [Concomitant]
     Indication: NEOPLASM MALIGNANT
     Route: 065
     Dates: start: 20100101
  5. ZYTIGA [Suspect]
     Dosage: STRENGTH: 250 MG
     Route: 048
     Dates: start: 20110701, end: 20110822

REACTIONS (5)
  - TINNITUS [None]
  - DRUG DOSE OMISSION [None]
  - OEDEMA PERIPHERAL [None]
  - RASH [None]
  - DIZZINESS [None]
